FAERS Safety Report 5674503-6 (Version None)
Quarter: 2008Q1

REPORT INFORMATION
  Report Type: 
  Country: None (occurrence: None)
  Receive Date: 20080317
  Receipt Date: 20080229
  Transmission Date: 20080703
  Serious: Yes (Other)
  Sender: FDA-Public Use
  Company Number: 2008JP001106

PATIENT
  Age: 57 Year
  Sex: Male

DRUGS (3)
  1. PROGRAF [Suspect]
     Indication: CORD BLOOD TRANSPLANT THERAPY
  2. PREDNISOLONE [Concomitant]
  3. GANCICLOVIR [Concomitant]

REACTIONS (2)
  - CYTOMEGALOVIRUS ANTIGEN POSITIVE [None]
  - DEMYELINATING POLYNEUROPATHY [None]
